FAERS Safety Report 4463618-6 (Version None)
Quarter: 2004Q3

REPORT INFORMATION
  Report Type: 
  Country: None (occurrence: None)
  Receive Date: 20040930
  Receipt Date: 20040603
  Transmission Date: 20050211
  Serious: Yes (Life-Threatening, Hospitalization, Other)
  Sender: FDA-Public Use
  Company Number: 2004S1001523

PATIENT
  Age: 47 Year
  Sex: Female

DRUGS (10)
  1. CLOZARIL [Suspect]
     Indication: SCHIZOAFFECTIVE DISORDER
  2. CLOZAPINE [Suspect]
     Indication: SCHIZOAFFECTIVE DISORDER
     Dosage: 700MG QD, ORAL
     Route: 048
     Dates: start: 19930101
  3. CISPLATIN [Suspect]
     Indication: LUNG NEOPLASM MALIGNANT
     Dates: start: 20040501
  4. ETOPOSIDE [Suspect]
     Indication: LUNG NEOPLASM MALIGNANT
     Dates: start: 20040501
  5. ACETAMINOPHEN AND HYDROCODONE BITARTRATE [Concomitant]
  6. POLYSACCHARIDE IRON COMPLEX [Concomitant]
  7. CLONAZEPAM [Concomitant]
  8. ROFECOXIB [Concomitant]
  9. MEGESTROL ACETATE [Concomitant]
  10. DARBEPOETIN ALFA [Concomitant]

REACTIONS (3)
  - LUNG NEOPLASM MALIGNANT [None]
  - PAIN IN EXTREMITY [None]
  - SURGERY [None]
